FAERS Safety Report 13266363 (Version 15)
Quarter: 2018Q2

REPORT INFORMATION
  Report Type: Report from Study
  Country: US (occurrence: US)
  Receive Date: 20170223
  Receipt Date: 20180622
  Transmission Date: 20180711
  Serious: Yes (Life-Threatening, Hospitalization, Congenital Anomaly, Other)
  Sender: FDA-Public Use
  Company Number: US-GLAXOSMITHKLINE-US2017GSK026201

PATIENT
  Age: 0 Year
  Sex: Male

DRUGS (3)
  1. BELIMUMAB [Suspect]
     Active Substance: BELIMUMAB
     Indication: SYSTEMIC LUPUS ERYTHEMATOSUS
     Dosage: UNK
     Route: 064
     Dates: start: 20160602
  2. FOLATE [Concomitant]
     Active Substance: FOLATE SODIUM
     Indication: PRODUCT USED FOR UNKNOWN INDICATION
     Dosage: UNK UNK, QD
     Route: 064
     Dates: start: 20160922
  3. ASPIRIN (BABY) [Concomitant]
     Active Substance: ASPIRIN
     Indication: PROPHYLAXIS
     Dosage: 80 MG, QD
     Route: 064
     Dates: start: 20160922

REACTIONS (12)
  - Respiratory distress [Unknown]
  - Hypoxia [Unknown]
  - Left-to-right cardiac shunt [Unknown]
  - Premature baby [Recovering/Resolving]
  - Atrial septal defect [Recovered/Resolved]
  - Respiratory syncytial virus infection [Recovered/Resolved]
  - Low birth weight baby [Unknown]
  - Ear infection [Recovered/Resolved]
  - Foetal exposure during pregnancy [Unknown]
  - Ventricular septal defect [Recovered/Resolved]
  - Bronchiolitis [Unknown]
  - Obstructive airways disorder [Unknown]

NARRATIVE: CASE EVENT DATE: 20170131
